FAERS Safety Report 8564777-6 (Version None)
Quarter: 2012Q3

REPORT INFORMATION
  Report Type: 
  Country: None (occurrence: None)
  Receive Date: 20120803
  Receipt Date: 20120725
  Transmission Date: 20120928
  Serious: Yes (Other)
  Sender: FDA-Public Use
  Company Number: TR-SANOFI-AVENTIS-2012SA053683

PATIENT

DRUGS (2)
  1. INDOMETHACIN [Suspect]
     Route: 065
  2. LEFLUNOMIDE [Suspect]
     Route: 065

REACTIONS (2)
  - ACUTE HEPATIC FAILURE [None]
  - HEPATITIS TOXIC [None]
